FAERS Safety Report 5573885-3 (Version None)
Quarter: 2007Q4

REPORT INFORMATION
  Report Type: 
  Country: None (occurrence: None)
  Receive Date: 20071226
  Receipt Date: 20071214
  Transmission Date: 20080405
  Serious: Yes (Life-Threatening, Hospitalization)
  Sender: FDA-Public Use
  Company Number: JP-AMGEN-US257621

PATIENT
  Age: 67 Year
  Sex: Female

DRUGS (4)
  1. ENBREL [Suspect]
     Indication: RHEUMATOID ARTHRITIS
     Route: 058
     Dates: start: 20070601
  2. RHEUMATREX [Suspect]
     Indication: RHEUMATOID ARTHRITIS
     Dosage: 8 MG STRENGTH; FREQUENCY NOT SPECIFIED
     Route: 048
  3. PROGRAF [Concomitant]
     Indication: RHEUMATOID ARTHRITIS
     Dosage: 1 MG; FREQUENCY NOT SPECIFIED
     Route: 048
  4. PREDONINE [Concomitant]
     Indication: RHEUMATOID ARTHRITIS
     Dosage: TABLET DOSE FORM; 5 MG STRENGTH; FREQUENCY NOT SPECIFIED
     Route: 048

REACTIONS (3)
  - DRUG INEFFECTIVE [None]
  - MUSCULAR WEAKNESS [None]
  - SEPSIS [None]
